FAERS Safety Report 13093650 (Version 2)
Quarter: 2017Q1

REPORT INFORMATION
  Report Type: Spontaneous
  Country: US (occurrence: US)
  Receive Date: 20170106
  Receipt Date: 20170202
  Transmission Date: 20170428
  Serious: Yes (Hospitalization, Other)
  Sender: FDA-Public Use
  Company Number: US-SAOL THERAPEUTICS-2016SAO01212

PATIENT
  Age: 42 Year
  Sex: Female

DRUGS (2)
  1. BACLOFEN. [Suspect]
     Active Substance: BACLOFEN
     Indication: CEREBRAL PALSY
  2. BACLOFEN. [Suspect]
     Active Substance: BACLOFEN
     Indication: MUSCLE SPASTICITY
     Dosage: 899 ?G, \DAY
     Route: 037

REACTIONS (10)
  - Hypertonia [Unknown]
  - Device alarm issue [Unknown]
  - Device failure [Unknown]
  - Vomiting [Unknown]
  - Dyspnoea [Unknown]
  - Influenza [Unknown]
  - Hypersensitivity [Unknown]
  - Withdrawal syndrome [Unknown]
  - Pneumonia aspiration [Unknown]
  - Device issue [Unknown]

NARRATIVE: CASE EVENT DATE: 2000
